FAERS Safety Report 12582943 (Version 2)
Quarter: 2016Q3

REPORT INFORMATION
  Report Type: Report from Study
  Country: US (occurrence: US)
  Receive Date: 20160722
  Receipt Date: 20160826
  Transmission Date: 20161109
  Serious: Yes (Death, Hospitalization, Other)
  Sender: FDA-Public Use
  Company Number: US-BAYER-2015-416450

PATIENT
  Age: 62 Year
  Sex: Female
  Weight: 77.98 kg

DRUGS (13)
  1. ADEMPAS [Suspect]
     Active Substance: RIOCIGUAT
     Indication: PULMONARY HYPERTENSION
     Dosage: UNK
     Dates: start: 20150723
  2. ADEMPAS [Suspect]
     Active Substance: RIOCIGUAT
     Indication: PULMONARY HYPERTENSION
     Dosage: 1.5 MG, TID
     Route: 048
  3. ADEMPAS [Suspect]
     Active Substance: RIOCIGUAT
     Indication: PULMONARY HYPERTENSION
     Dosage: 2.5 MG, TID
     Route: 048
  4. ADEMPAS [Suspect]
     Active Substance: RIOCIGUAT
     Indication: PULMONARY HYPERTENSION
     Dosage: 2.5 MG, TID
     Route: 048
  5. ADEMPAS [Suspect]
     Active Substance: RIOCIGUAT
     Indication: PULMONARY HYPERTENSION
     Dosage: 2.5 MG, TID
     Route: 048
  6. REMODULIN [Suspect]
     Active Substance: TREPROSTINIL
     Indication: PULMONARY HYPERTENSION
     Dosage: 95 NG/KG/MIN
     Route: 058
     Dates: start: 20071018
  7. ADEMPAS [Suspect]
     Active Substance: RIOCIGUAT
     Indication: PULMONARY HYPERTENSION
     Dosage: 2.5 MG, TID
     Route: 048
  8. TRACLEER [Concomitant]
     Active Substance: BOSENTAN
     Dosage: UNK
  9. ADEMPAS [Suspect]
     Active Substance: RIOCIGUAT
     Indication: PULMONARY HYPERTENSION
     Dosage: 2.5 MG, TID
     Route: 048
  10. ADEMPAS [Suspect]
     Active Substance: RIOCIGUAT
     Indication: PULMONARY HYPERTENSION
     Dosage: 2.5 MG, TID
     Route: 048
  11. ADEMPAS [Suspect]
     Active Substance: RIOCIGUAT
     Indication: PULMONARY HYPERTENSION
     Dosage: 2.5 MG, TID
     Route: 048
  12. ADEMPAS [Suspect]
     Active Substance: RIOCIGUAT
     Indication: PULMONARY HYPERTENSION
     Dosage: 2 MG, TID
     Route: 048
  13. ADEMPAS [Suspect]
     Active Substance: RIOCIGUAT
     Indication: PULMONARY HYPERTENSION
     Dosage: 1 MG, TID
     Route: 048

REACTIONS (41)
  - Cholecystostomy [Unknown]
  - Malaise [None]
  - General physical health deterioration [Not Recovered/Not Resolved]
  - Cardiac discomfort [None]
  - Weight decreased [Unknown]
  - Dyspnoea [None]
  - Infusion site reaction [None]
  - Blood pressure increased [None]
  - Depressed mood [Not Recovered/Not Resolved]
  - Nausea [None]
  - Malaise [Unknown]
  - Infusion site urticaria [None]
  - Abdominal discomfort [None]
  - Gastrointestinal disorder [Unknown]
  - Vision blurred [Recovered/Resolved]
  - Pulmonary arterial hypertension [Unknown]
  - Adverse drug reaction [None]
  - Gallbladder disorder [Unknown]
  - Malaise [None]
  - Headache [Unknown]
  - Hypotension [Unknown]
  - Hospitalisation [None]
  - Pain [Not Recovered/Not Resolved]
  - Urticaria [None]
  - Headache [Unknown]
  - Vomiting [Unknown]
  - Malaise [None]
  - Chest discomfort [None]
  - Pneumonia [Fatal]
  - Septic shock [Fatal]
  - Cholecystitis acute [None]
  - Infusion site infection [Unknown]
  - Ear discomfort [None]
  - Infusion site pain [None]
  - Diarrhoea [Unknown]
  - Infusion site reaction [Unknown]
  - Gallbladder pain [None]
  - Abnormal loss of weight [None]
  - Clostridium difficile colitis [Unknown]
  - Flushing [None]
  - Syncope [None]

NARRATIVE: CASE EVENT DATE: 2015
